FAERS Safety Report 5020363-6 (Version None)
Quarter: 2006Q2

REPORT INFORMATION
  Report Type: 
  Country: None (occurrence: None)
  Receive Date: 20060602
  Receipt Date: 20060519
  Transmission Date: 20061013
  Serious: Yes (Hospitalization, Other)
  Sender: FDA-Public Use
  Company Number: A-US2006-12346

PATIENT
  Age: 79 Year
  Sex: Female
  Weight: 62.2 kg

DRUGS (10)
  1. TRACLEER [Suspect]
     Indication: PULMONARY HYPERTENSION
     Dosage: SEE IMAGE
     Route: 048
     Dates: start: 20050608, end: 20050709
  2. TRACLEER [Suspect]
     Indication: PULMONARY HYPERTENSION
     Dosage: SEE IMAGE
     Route: 048
     Dates: start: 20050710, end: 20050819
  3. TRACLEER [Suspect]
     Indication: PULMONARY HYPERTENSION
     Dosage: SEE IMAGE
     Route: 048
     Dates: start: 20050901, end: 20050923
  4. WARFARIN SODIUM [Concomitant]
  5. ADALAT OROS (NIFEDIPINE) [Concomitant]
  6. METOPROLOL TARTRATE [Concomitant]
  7. LANSOPRAZOLE [Concomitant]
  8. JEZIL (GEMFIBROZIL) [Concomitant]
  9. ACETAMINOPHEN [Concomitant]
  10. PROCHLORPERAZINE [Concomitant]

REACTIONS (20)
  - ABDOMINAL PAIN UPPER [None]
  - ALANINE AMINOTRANSFERASE INCREASED [None]
  - BILE DUCT OBSTRUCTION [None]
  - BILE DUCT STONE [None]
  - BLOOD ALKALINE PHOSPHATASE INCREASED [None]
  - BLOOD BILIRUBIN INCREASED [None]
  - CHOLELITHIASIS [None]
  - CHOLESTASIS [None]
  - CHROMATURIA [None]
  - CONDITION AGGRAVATED [None]
  - GAMMA-GLUTAMYLTRANSFERASE INCREASED [None]
  - HEPATIC FUNCTION ABNORMAL [None]
  - JAUNDICE CHOLESTATIC [None]
  - MALAISE [None]
  - ODDI'S SPHINCTER CONSTRICTION [None]
  - OEDEMA PERIPHERAL [None]
  - POST PROCEDURAL OEDEMA [None]
  - PRURITUS [None]
  - PYREXIA [None]
  - RASH [None]
